FAERS Safety Report 5022623-1 (Version None)
Quarter: 2006Q2

REPORT INFORMATION
  Report Type: 
  Country: None (occurrence: None)
  Receive Date: 20060605
  Receipt Date: 20060522
  Transmission Date: 20061013
  Serious: Yes (Other)
  Sender: FDA-Public Use
  Company Number: 2006057999

PATIENT
  Age: 58 Year
  Sex: Male
  Weight: 81 kg

DRUGS (1)
  1. SUTENT [Suspect]
     Indication: METASTATIC RENAL CELL CARCINOMA
     Dosage: 50 MG (50 MG, CYCLIC; 4 OF 6 WEEKS), ORAL
     Route: 048
     Dates: start: 20060328

REACTIONS (1)
  - TRANSIENT ISCHAEMIC ATTACK [None]
